FAERS Safety Report 14699462 (Version 3)
Quarter: 2018Q3

REPORT INFORMATION
  Report Type: Report from Study
  Country: US (occurrence: US)
  Receive Date: 20180330
  Receipt Date: 20180720
  Transmission Date: 20181010
  Serious: Yes (Other)
  Sender: FDA-Public Use
  Company Number: PHEH2018US012204

PATIENT
  Sex: Male
  Weight: 55.3 kg

DRUGS (1)
  1. COSENTYX [Suspect]
     Active Substance: SECUKINUMAB
     Indication: ANKYLOSING SPONDYLITIS
     Dosage: 150 MG, QMO
     Route: 058
     Dates: start: 201706

REACTIONS (6)
  - Ankylosing spondylitis [Unknown]
  - Arthritis [Unknown]
  - Drug ineffective [Unknown]
  - Pain in extremity [Unknown]
  - Ear infection [Unknown]
  - Nasopharyngitis [Unknown]
